FAERS Safety Report 19879464 (Version 1)
Quarter: 2021Q3

REPORT INFORMATION
  Report Type: Report from Study
  Country: CA (occurrence: CA)
  Receive Date: 20210924
  Receipt Date: 20210924
  Transmission Date: 20211014
  Serious: Yes (Death)
  Sender: FDA-Public Use
  Company Number: CA-ACCORD-239665

PATIENT
  Sex: Male

DRUGS (8)
  1. MYCOPHENOLIC ACID. [Suspect]
     Active Substance: MYCOPHENOLIC ACID
     Indication: PRODUCT USED FOR UNKNOWN INDICATION
     Route: 065
  2. RITUXIMAB. [Suspect]
     Active Substance: RITUXIMAB
     Indication: PEMPHIGUS
     Route: 042
  3. DABRAFENIB [Concomitant]
     Active Substance: DABRAFENIB
  4. PREDNISONE. [Concomitant]
     Active Substance: PREDNISONE
  5. TRAMETINIB [Concomitant]
     Active Substance: TRAMETINIB
  6. CYANOCOBALAMIN/CYANOCOBALAMIN ZINC TANNATE/CYANOCOBALAMIN?TANNIN COMPLEX [Concomitant]
     Active Substance: CYANOCOBALAMIN
  7. TYLENOL [Concomitant]
     Active Substance: ACETAMINOPHEN
  8. PANTOLOC [Concomitant]
     Active Substance: PANTOPRAZOLE SODIUM

REACTIONS (2)
  - Intentional product use issue [Fatal]
  - Metastatic malignant melanoma [Fatal]
